FAERS Safety Report 6558963-4 (Version None)
Quarter: 2010Q1

REPORT INFORMATION
  Report Type: 
  Country: None (occurrence: None)
  Receive Date: 20100129
  Receipt Date: 20100119
  Transmission Date: 20100710
  Serious: Yes (Hospitalization)
  Sender: FDA-Public Use
  Company Number: US-ELI_LILLY_AND_COMPANY-US201001003909

PATIENT
  Sex: Female
  Weight: 78.458 kg

DRUGS (11)
  1. BYETTA [Suspect]
     Indication: DIABETES MELLITUS
     Dosage: 5 UG, 2/D
     Dates: start: 20070101
  2. BYETTA [Suspect]
     Dosage: 10 UG, 2/D
  3. BYETTA [Suspect]
     Dosage: 5 UG, 2/D
  4. BYETTA [Suspect]
     Dosage: 5 UG, 2/D
  5. BYETTA [Suspect]
     Dosage: 10 UG, UNK
  6. NOVOLOG MIX 70/30 [Concomitant]
     Dosage: 20 U, EACH MORNING
  7. NOVOLOG MIX 70/30 [Concomitant]
     Dosage: 10 U, OTHER
  8. NOVOLOG MIX 70/30 [Concomitant]
     Dosage: 15 U, EACH EVENING
  9. GLUMETZA [Concomitant]
     Dosage: 2000 MG, DAILY (1/D)
  10. LEVOTHYROXINE SODIUM [Concomitant]
     Dosage: UNK, UNKNOWN
  11. ALBUTEROL [Concomitant]

REACTIONS (30)
  - ABDOMINAL DISCOMFORT [None]
  - AMNESIA [None]
  - ANAEMIA [None]
  - ASTHMA [None]
  - ATTENTION DEFICIT/HYPERACTIVITY DISORDER [None]
  - BLOOD GLUCOSE INCREASED [None]
  - BLOOD PRESSURE INCREASED [None]
  - COUGH [None]
  - CYSTITIS [None]
  - DECREASED APPETITE [None]
  - DEMENTIA ALZHEIMER'S TYPE [None]
  - DRUG INEFFECTIVE [None]
  - DYSPNOEA [None]
  - FEELING ABNORMAL [None]
  - HEADACHE [None]
  - HEART RATE INCREASED [None]
  - HEPATIC ENZYME INCREASED [None]
  - INCONTINENCE [None]
  - MALAISE [None]
  - MEMORY IMPAIRMENT [None]
  - NAUSEA [None]
  - OEDEMA PERIPHERAL [None]
  - OFF LABEL USE [None]
  - PRODUCT TASTE ABNORMAL [None]
  - PYELONEPHRITIS [None]
  - RESTLESS LEGS SYNDROME [None]
  - SLEEP APNOEA SYNDROME [None]
  - URINARY TRACT INFECTION [None]
  - WEIGHT DECREASED [None]
  - WHEEZING [None]
